FAERS Safety Report 11110956 (Version 2)
Quarter: 2015Q2

REPORT INFORMATION
  Report Type: Spontaneous
  Country: FR (occurrence: FR)
  Receive Date: 20150513
  Receipt Date: 20150528
  Transmission Date: 20150821
  Serious: Yes (Death, Hospitalization, Other)
  Sender: FDA-Public Use
  Company Number: FR-PFIZER INC-2015154577

PATIENT
  Age: 88 Year
  Sex: Female

DRUGS (12)
  1. PLAVIX [Concomitant]
     Active Substance: CLOPIDOGREL BISULFATE
  2. IXPRIM [Concomitant]
     Active Substance: ACETAMINOPHEN\TRAMADOL HYDROCHLORIDE
  3. DETENSIEL /00802601/ [Concomitant]
     Active Substance: BISOPROLOL FUMARATE
  4. STILNOX [Concomitant]
     Active Substance: ZOLPIDEM TARTRATE
  5. HYDREA [Suspect]
     Active Substance: HYDROXYUREA
     Dosage: 1 DF DAILY ALTERNATING WITH 2 DF DAILY
     Route: 048
     Dates: start: 20150109
  6. ATACAND [Concomitant]
     Active Substance: CANDESARTAN CILEXETIL
  7. LERCAN [Concomitant]
     Active Substance: LERCANIDIPINE
  8. HYDREA [Suspect]
     Active Substance: HYDROXYUREA
     Indication: ESSENTIAL THROMBOCYTHAEMIA
     Dosage: 1 DF DAILY ALTERNATING WITH 2 DF DAILY
     Route: 048
     Dates: start: 201102, end: 20141217
  9. LASILIX /00032601/ [Concomitant]
     Active Substance: FUROSEMIDE
  10. TAHOR [Suspect]
     Active Substance: ATORVASTATIN CALCIUM
     Indication: HYPERCHOLESTEROLAEMIA
     Dosage: 20 MG, DAILY
     Route: 048
  11. KARDEGIC [Concomitant]
     Active Substance: ASPIRIN LYSINE
  12. YSOMEGA [Concomitant]

REACTIONS (4)
  - Fall [Unknown]
  - Pulmonary fibrosis [Fatal]
  - Cardiac failure [Fatal]
  - Pulmonary embolism [Unknown]

NARRATIVE: CASE EVENT DATE: 2013
